FAERS Safety Report 24399860 (Version 1)
Quarter: 2024Q4

REPORT INFORMATION
  Report Type: Spontaneous
  Country: GB (occurrence: GB)
  Receive Date: 20241005
  Receipt Date: 20241005
  Transmission Date: 20250115
  Serious: Yes (Other)
  Sender: TEVA
  Company Number: GB-MHRA-TPP9670495C10537161YC1727265365322

PATIENT
  Age: 79 Year
  Sex: Female
  Weight: 93 kg

DRUGS (24)
  1. PREDNISOLONE [Suspect]
     Active Substance: PREDNISOLONE
     Indication: Ill-defined disorder
     Dosage: TPP YC - PLEASE RECLASSIFY
     Route: 065
     Dates: start: 20240415
  2. LOPERAMIDE [Concomitant]
     Active Substance: LOPERAMIDE
     Indication: Ill-defined disorder
     Dosage: AS DIRECTED, TPP YC - PLEASE RECLASSIFY
     Route: 065
     Dates: start: 20071106
  3. AMITRIPTYLINE HYDROCHLORIDE [Concomitant]
     Active Substance: AMITRIPTYLINE HYDROCHLORIDE
     Indication: Ill-defined disorder
     Dosage: TAKE 1- 3 TO BE TAKEN EACH NIGHT, TPP YC - PLEASE RECLASSIFY
     Route: 065
     Dates: start: 20200310
  4. CYANOCOBALAMIN [Concomitant]
     Active Substance: CYANOCOBALAMIN
     Indication: Ill-defined disorder
     Dosage: TAKE ONE A DAY ON AN EMPTY STOMACH. THIS IS TO, TPP YC - PLEASE RECLASSIFY
     Route: 065
     Dates: start: 20200626
  5. LORATADINE [Concomitant]
     Active Substance: LORATADINE
     Indication: Ill-defined disorder
     Dosage: TAKE ONE DAILY, TPP YC - PLEASE RECLASSIFY
     Route: 065
     Dates: start: 20090303
  6. CARBOCYSTEINE [Concomitant]
     Active Substance: CARBOCYSTEINE
     Indication: Ill-defined disorder
     Dosage: TIME INTERVAL: 0.33333333 DAYS: TAKE TWO THREE TIMES A DAY FOR 6-8 WEEKS, THEN, TPP YC - PLEASE R...
     Route: 065
     Dates: start: 20221102
  7. MONTELUKAST [Concomitant]
     Active Substance: MONTELUKAST
     Indication: Ill-defined disorder
     Dosage: ONE TO BE TAKEN DAILY, TPP YC - PLEASE RECLASSIFY
     Route: 065
     Dates: start: 20050125
  8. CANDESARTAN [Concomitant]
     Active Substance: CANDESARTAN
     Indication: Ill-defined disorder
     Dosage: TAKE ONE ONCE DAILY, TPP YC - PLEASE RECLASSIFY
     Route: 065
     Dates: start: 20140315
  9. ATORVASTATIN [Concomitant]
     Active Substance: ATORVASTATIN
     Indication: Ill-defined disorder
     Dosage: TAKE ONE DAILY AT NIGHT, TPP YC - PLEASE RECLASSIFY
     Route: 065
     Dates: start: 20180531
  10. ACETAMINOPHEN [Concomitant]
     Active Substance: ACETAMINOPHEN
     Indication: Ill-defined disorder
     Dosage: TWO FOUR TIMES DAILY, TPP YC - PLEASE RECLASSIFY
     Route: 065
     Dates: start: 20201217
  11. CALCIUM CARBONATE\CHOLECALCIFEROL [Concomitant]
     Active Substance: CALCIUM CARBONATE\CHOLECALCIFEROL
     Indication: Ill-defined disorder
     Dosage: ONE TO BE SWALLOWED WHOLE EACH LUNCHTIME AND TE, TPP YC - PLEASE RECLASSIFY
     Route: 048
     Dates: start: 20190111
  12. LANSOPRAZOLE [Concomitant]
     Active Substance: LANSOPRAZOLE
     Indication: Ill-defined disorder
     Dosage: TAKE ONE TWICE A DAY, TPP YC - PLEASE RECLASSIFY
     Route: 065
     Dates: start: 20201229
  13. GABAPENTIN [Concomitant]
     Active Substance: GABAPENTIN
     Indication: Ill-defined disorder
     Dosage: TAKE ONE UP TO 3 TIMES/DAY, TPP YC - PLEASE RECLASSIFY
     Route: 065
     Dates: start: 20240913
  14. FERROUS SULFATE [Concomitant]
     Active Substance: FERROUS SULFATE
     Indication: Ill-defined disorder
     Dosage: EVERY DAY, TPP YC - PLEASE RECLASSIFY
     Route: 065
     Dates: start: 20240923
  15. OXYBUTYNIN [Concomitant]
     Active Substance: OXYBUTYNIN
     Indication: Ill-defined disorder
     Dosage: 1 MORNING 2 EACH NIGHT, TPP YC - PLEASE RECLASSIFY
     Route: 065
     Dates: start: 20090930
  16. TRAMADOL [Concomitant]
     Active Substance: TRAMADOL
     Indication: Ill-defined disorder
     Dosage: TAKE ONE CAPSULE EVERY 4 TO 6 HOURS WHEN REQUIR, TPP YC - PLEASE RECLASSIFY
     Route: 065
     Dates: start: 20200310
  17. LEVOTHYROXINE [Concomitant]
     Active Substance: LEVOTHYROXINE
     Indication: Ill-defined disorder
     Dosage: ONE TO BE TAKEN DAILY, TPP YC - PLEASE RECLASSIFY
     Route: 065
     Dates: start: 20150220
  18. FELODIPINE [Concomitant]
     Active Substance: FELODIPINE
     Indication: Ill-defined disorder
     Dosage: TAKE ONE DAILY, TPP YC - PLEASE RECLASSIFY
     Route: 065
     Dates: start: 20140528
  19. RYBELSUS [Concomitant]
     Active Substance: SEMAGLUTIDE
     Indication: Ill-defined disorder
     Dosage: TAKE ONE DAILY, TPP YC - PLEASE RECLASSIFY
     Route: 065
     Dates: start: 20240808
  20. DOXYCYCLINE [Concomitant]
     Active Substance: DOXYCYCLINE
     Indication: Ill-defined disorder
     Dosage: TAKE TWO CAPSULES NOW AND THEN TAKE ONE CAPSULE, TPP YC - PLEASE RECLASSIFY
     Route: 065
     Dates: start: 20190709
  21. DEXTROSE [Concomitant]
     Active Substance: DEXTROSE MONOHYDRATE
     Indication: Ill-defined disorder
     Dosage: USE AS DIRECTED, TPP YC - PLEASE RECLASSIFY
     Route: 065
     Dates: start: 20240304
  22. INSULIN HUMAN [Concomitant]
     Active Substance: INSULIN HUMAN
     Indication: Ill-defined disorder
     Dosage: USE AS DIRECTED, TPP YC - PLEASE RECLASSIFY
     Route: 065
     Dates: start: 20101104
  23. ALBUTEROL [Concomitant]
     Active Substance: ALBUTEROL
     Indication: Ill-defined disorder
     Dosage: TIME INTERVAL: AS NECESSARY: INHALE 2 DOSES AS NEEDED, TPP YC - PLEASE RECLASSIFY
     Route: 055
     Dates: start: 20010509
  24. PREDNISOLONE [Concomitant]
     Active Substance: PREDNISOLONE
     Indication: Ill-defined disorder
     Dosage: TAKE SIX DAILY FOR 5 DAYS-AS RESCUE FOR CHEST F, TPP YC - PLEASE RECLASSIFY
     Route: 065
     Dates: start: 20190709

REACTIONS (1)
  - Trigeminal neuralgia [Recovering/Resolving]

NARRATIVE: CASE EVENT DATE: 20240415
